FAERS Safety Report 12712621 (Version 1)
Quarter: 2016Q3

REPORT INFORMATION
  Report Type: Other
  Country: NO (occurrence: NO)
  Receive Date: 20160902
  Receipt Date: 20160902
  Transmission Date: 20161109
  Serious: Yes (Hospitalization, Other)
  Sender: FDA-Public Use
  Company Number: NO-CELLTRION HEALTHCARE HUNGARY KFT-2015NO005155

PATIENT

DRUGS (17)
  1. HUMIRA [Suspect]
     Active Substance: ADALIMUMAB
     Dosage: 40 MG, SINGLE
     Route: 058
     Dates: start: 20140918, end: 20140918
  2. IMODIUM [Concomitant]
     Active Substance: LOPERAMIDE HYDROCHLORIDE
     Indication: DIARRHOEA
     Dosage: MORNING TABLET, ONCE A DAY
     Route: 065
  3. PARACETAMOL [Concomitant]
     Active Substance: ACETAMINOPHEN
     Indication: ABDOMINAL PAIN
     Dosage: ONCE A DAY
     Route: 065
  4. ZANTAC [Concomitant]
     Active Substance: RANITIDINE HYDROCHLORIDE
     Indication: PRODUCT USED FOR UNKNOWN INDICATION
     Dosage: ONCE A DAY
     Route: 065
  5. NOBLIGAN [Concomitant]
     Active Substance: TRAMADOL HYDROCHLORIDE
     Indication: ANALGESIC THERAPY
     Dosage: 1 TABLET WHEN NEEDED, MAX 3 TIMES PER DAY
  6. PENTASA [Concomitant]
     Active Substance: MESALAMINE
     Indication: PRODUCT USED FOR UNKNOWN INDICATION
     Dosage: UNK
     Route: 065
  7. PREDNISOLONE. [Concomitant]
     Active Substance: PREDNISOLONE
     Indication: ENTERITIS
     Dosage: REDUCED BY 5 MG A WEEK UNTIL DISCONTINUED, ONCE A DAY
     Route: 065
     Dates: start: 20140721
  8. PARACETAMOL [Concomitant]
     Active Substance: ACETAMINOPHEN
     Indication: PAIN
     Dosage: USE 1 TABLET (40 MG), 2-3 TIMES DAILY FOR A WEEK, THEN UPON NEED
     Route: 065
  9. REMSIMA [Suspect]
     Active Substance: INFLIXIMAB
     Dosage: UNK
     Route: 042
     Dates: start: 20141118, end: 20141118
  10. HUMIRA [Suspect]
     Active Substance: ADALIMUMAB
     Dosage: UNK
     Route: 065
     Dates: end: 20141201
  11. REMSIMA [Suspect]
     Active Substance: INFLIXIMAB
     Indication: PRODUCT USED FOR UNKNOWN INDICATION
     Dosage: 400 MG
     Route: 042
     Dates: start: 20141106, end: 20141106
  12. REMSIMA [Suspect]
     Active Substance: INFLIXIMAB
     Dosage: 65ML/H, INCREASE TO 100ML/H AND 125 ML/H
     Route: 042
     Dates: start: 20141216, end: 20141216
  13. HUMIRA [Suspect]
     Active Substance: ADALIMUMAB
     Indication: CROHN^S DISEASE
     Dosage: 160 MG, SINGLE
     Route: 058
     Dates: start: 20140808, end: 20140808
  14. ZYRTEC [Concomitant]
     Active Substance: CETIRIZINE HYDROCHLORIDE
     Indication: PRODUCT USED FOR UNKNOWN INDICATION
     Dosage: ONCE A DAY
     Route: 065
  15. HUMIRA [Suspect]
     Active Substance: ADALIMUMAB
     Dosage: 80 MG, SINGLE (SECOND DOSE)
     Route: 058
     Dates: start: 20140822, end: 20140822
  16. HUMIRA [Suspect]
     Active Substance: ADALIMUMAB
     Dosage: 40 MG, SINGLE
     Route: 058
     Dates: start: 201410, end: 201410
  17. IMUREL                             /00001501/ [Suspect]
     Active Substance: AZATHIOPRINE SODIUM
     Indication: CROHN^S DISEASE
     Route: 065

REACTIONS (17)
  - Headache [Not Recovered/Not Resolved]
  - Infusion site pain [Unknown]
  - Acne [Unknown]
  - Dizziness [Recovered/Resolved]
  - Cough [Unknown]
  - Pancreatitis acute [Recovered/Resolved with Sequelae]
  - Decreased appetite [Unknown]
  - Clostridium difficile infection [Unknown]
  - Nausea [Recovered/Resolved]
  - Hyperhidrosis [Unknown]
  - Eye pain [Unknown]
  - Pancreatitis chronic [Not Recovered/Not Resolved]
  - Cold sweat [Unknown]
  - Pain [Unknown]
  - Dyspnoea [Unknown]
  - Tooth discolouration [Unknown]
  - Crohn^s disease [Unknown]

NARRATIVE: CASE EVENT DATE: 20141106
